FAERS Safety Report 5132116-9 (Version None)
Quarter: 2006Q4

REPORT INFORMATION
  Report Type: 
  Country: None (occurrence: None)
  Receive Date: 20061017
  Receipt Date: 20061002
  Transmission Date: 20070319
  Serious: Yes (Hospitalization)
  Sender: FDA-Public Use
  Company Number: 06US000835

PATIENT
  Age: 52 Year
  Sex: Male
  Weight: 70.3 kg

DRUGS (4)
  1. LITHOBID [Suspect]
     Indication: BIPOLAR DISORDER
     Dosage: SEE TEXT, ORAL
     Route: 048
     Dates: start: 19840101, end: 20041001
  2. LISINOPRIL [Concomitant]
  3. CLONAZEPAM [Concomitant]
  4. HYDROCHLOROTHIAZIDE [Concomitant]

REACTIONS (9)
  - BLOOD CREATININE INCREASED [None]
  - BRAIN DAMAGE [None]
  - HYPERTENSION [None]
  - NERVOUSNESS [None]
  - NONSPECIFIC REACTION [None]
  - OVERDOSE [None]
  - RENAL DISORDER [None]
  - THERAPEUTIC AGENT TOXICITY [None]
  - TREMOR [None]
